FAERS Safety Report 8514247-6 (Version None)
Quarter: 2012Q3

REPORT INFORMATION
  Report Type: 
  Country: None (occurrence: None)
  Receive Date: 20120717
  Receipt Date: 20120710
  Transmission Date: 20120928
  Serious: Yes (Other)
  Sender: FDA-Public Use
  Company Number: US-JNJFOC-20070605364

PATIENT
  Sex: Female
  Weight: 121 kg

DRUGS (3)
  1. PLACEBO [Suspect]
     Indication: PROPHYLAXIS
     Route: 048
  2. PYRIDOXINE HCL [Suspect]
     Indication: PROPHYLAXIS
     Route: 048
  3. DOXORUBICIN HCL [Suspect]
     Indication: ENDOMETRIAL CANCER
     Route: 042
     Dates: start: 20070605, end: 20070605

REACTIONS (1)
  - HYPERSENSITIVITY [None]
